FAERS Safety Report 6814755-X (Version None)
Quarter: 2010Q3

REPORT INFORMATION
  Report Type: 
  Country: None (occurrence: None)
  Receive Date: 20100702
  Receipt Date: 20100624
  Transmission Date: 20110219
  Serious: Yes (Hospitalization)
  Sender: FDA-Public Use
  Company Number: US-ROCHE-675065

PATIENT
  Sex: Female
  Weight: 85.3 kg

DRUGS (6)
  1. PEGINTERFERON ALFA-2A [Suspect]
     Dosage: FORM: INJECTABLE SOLUTION. DRUG PERMANENTLY DISCONTINUED. LAST DOSE PRIOR TO SAE: 02 NOVEMBER 2009.
     Route: 058
     Dates: start: 20080928, end: 20081103
  2. RIBAVIRIN [Suspect]
     Dosage: FORM REPORTED AS PILLS. DRUG WAS PERMANENTLY DISCONTINUED.
     Route: 048
     Dates: start: 20080928, end: 20081103
  3. INDERAL [Concomitant]
  4. PREVACID [Concomitant]
  5. AVELOX [Concomitant]
     Dates: start: 20081101
  6. FLAGYL [Concomitant]
     Dates: start: 20081101

REACTIONS (1)
  - NEPHROLITHIASIS [None]
